FAERS Safety Report 7700160-0 (Version None)
Quarter: 2011Q3

REPORT INFORMATION
  Report Type: 
  Country: None (occurrence: None)
  Receive Date: 20110822
  Receipt Date: 20110819
  Transmission Date: 20111222
  Serious: Yes (Other)
  Sender: FDA-Public Use
  Company Number: US-PFIZER INC-2011185402

PATIENT
  Sex: Female
  Weight: 100 kg

DRUGS (1)
  1. PROTONIX [Suspect]
     Dosage: UNK
     Dates: end: 20110101

REACTIONS (1)
  - STEVENS-JOHNSON SYNDROME [None]
